FAERS Safety Report 8343180-8 (Version None)
Quarter: 2012Q2

REPORT INFORMATION
  Report Type: 
  Country: None (occurrence: None)
  Receive Date: 20120508
  Receipt Date: 20120430
  Transmission Date: 20120825
  Serious: Yes (Hospitalization)
  Sender: FDA-Public Use
  Company Number: US-BAYER-2011-075614

PATIENT
  Age: 38 Year
  Sex: Female
  Weight: 62.132 kg

DRUGS (1)
  1. YAZ [Suspect]
     Dosage: UNK
     Dates: start: 20071001, end: 20100601

REACTIONS (2)
  - INJURY [None]
  - GALLBLADDER INJURY [None]
